FAERS Safety Report 4880082-3 (Version None)
Quarter: 2006Q1

REPORT INFORMATION
  Report Type: 
  Country: None (occurrence: None)
  Receive Date: 20060111
  Receipt Date: 20060103
  Transmission Date: 20060701
  Serious: Yes (Hospitalization)
  Sender: FDA-Public Use
  Company Number: 2005BI020219

PATIENT
  Age: 47 Year
  Sex: Female

DRUGS (25)
  1. AVONEX [Suspect]
     Indication: MULTIPLE SCLEROSIS
     Dosage: 30 UG; QW; IM
     Route: 030
     Dates: start: 19971101
  2. AVONEX [Suspect]
     Indication: MULTIPLE SCLEROSIS
     Dosage: 30 UG; QW; IM
     Route: 030
  3. AVONEX [Suspect]
     Indication: MULTIPLE SCLEROSIS
     Dosage: 1.35 UG; QW; IM
     Route: 030
     Dates: start: 20000101
  4. PHENERGAN [Concomitant]
  5. LIPITOR [Concomitant]
  6. LOMOTIL [Concomitant]
  7. ZANTAC [Concomitant]
  8. PREVACID [Concomitant]
  9. REGLAN [Concomitant]
  10. ACTONEL [Concomitant]
  11. MIRAPEX [Concomitant]
  12. FLUMADINE [Concomitant]
  13. RESTORIL [Concomitant]
  14. NEURONTIN [Concomitant]
  15. PAXIL [Concomitant]
  16. CARDURA [Concomitant]
  17. LIMBITROL [Concomitant]
  18. XANAX [Concomitant]
  19. BUSPAR [Concomitant]
  20. CELEBREX [Concomitant]
  21. VICODIN ES [Concomitant]
  22. SOMA [Concomitant]
  23. TRIMETHOPRIM [Concomitant]
  24. MEDPROXYPR AC [Concomitant]
  25. ESTRADIAL [Concomitant]

REACTIONS (4)
  - CHILLS [None]
  - HIP ARTHROPLASTY [None]
  - PAIN [None]
  - PYREXIA [None]
